FAERS Safety Report 14990880 (Version 1)
Quarter: 2018Q2

REPORT INFORMATION
  Report Type: Spontaneous
  Country: CN (occurrence: CN)
  Receive Date: 20180608
  Receipt Date: 20180608
  Transmission Date: 20180711
  Serious: Yes (Other)
  Sender: FDA-Public Use
  Company Number: CN-TERSERA THERAPEUTICS, LLC-2049174

PATIENT

DRUGS (3)
  1. FLUTAMIDE. [Concomitant]
     Active Substance: FLUTAMIDE
     Route: 065
  2. CASODEX [Suspect]
     Active Substance: BICALUTAMIDE
     Route: 048
  3. ZOLADEX [Suspect]
     Active Substance: GOSERELIN ACETATE
     Indication: PRODUCT USED FOR UNKNOWN INDICATION
     Route: 058

REACTIONS (1)
  - Malignant neoplasm progression [Unknown]
